FAERS Safety Report 19386145 (Version 1)
Quarter: 2021Q2

REPORT INFORMATION
  Report Type: Spontaneous
  Country: US (occurrence: US)
  Receive Date: 20210607
  Receipt Date: 20210607
  Transmission Date: 20210717
  Serious: Yes (Life-Threatening, Hospitalization)
  Sender: FDA-Public Use
  Company Number: US-PRINSTON PHARMACEUTICAL INC.-2021PRN00196

PATIENT
  Age: 23 Year
  Sex: Male

DRUGS (2)
  1. CITALOPRAM [Suspect]
     Active Substance: CITALOPRAM HYDROBROMIDE
     Route: 065
  2. BUPROPION. [Suspect]
     Active Substance: BUPROPION
     Route: 065

REACTIONS (4)
  - Overdose [Recovered/Resolved]
  - Cardiac arrest [Recovered/Resolved]
  - Seizure [Recovered/Resolved]
  - Vasoplegia syndrome [Recovered/Resolved]
